FAERS Safety Report 10530106 (Version 1)
Quarter: 2014Q4

REPORT INFORMATION
  Report Type: Spontaneous
  Country: JP (occurrence: None)
  Receive Date: 20141017
  Receipt Date: 20141017
  Transmission Date: 20150528
  Serious: No
  Sender: FDA-Public Use
  Company Number: JP2014JPN001712

PATIENT

DRUGS (2)
  1. NEODOPASTON (CARBIDOPA, LEVODOPA) [Concomitant]
  2. PAXIL CR [Suspect]
     Active Substance: PAROXETINE HYDROCHLORIDE
     Indication: DEPRESSED MOOD
     Route: 048

REACTIONS (1)
  - Parkinson^s disease [None]
